FAERS Safety Report 14605286 (Version 1)
Quarter: 2018Q1

REPORT INFORMATION
  Report Type: Spontaneous
  Country: US (occurrence: US)
  Receive Date: 20180306
  Receipt Date: 20180306
  Transmission Date: 20180509
  Serious: No
  Sender: FDA-Public Use
  Company Number: US-TARO-2017TAR01087

PATIENT
  Age: 61 Year
  Sex: Female

DRUGS (1)
  1. TERCONAZOLE VAGINAL CREAM 0.4% [Suspect]
     Active Substance: TERCONAZOLE
     Dosage: 1 DOSAGE UNITS (APPLICATORFUL), 1X/DAY
     Route: 067
     Dates: start: 20171215, end: 20171219

REACTIONS (3)
  - Application site irritation [Recovered/Resolved]
  - Scratch [Recovered/Resolved]
  - Product quality issue [Recovered/Resolved]

NARRATIVE: CASE EVENT DATE: 20171215
